FAERS Safety Report 24030196 (Version 2)
Quarter: 2024Q3

REPORT INFORMATION
  Report Type: Spontaneous
  Country: US (occurrence: US)
  Receive Date: 20240628
  Receipt Date: 20240726
  Transmission Date: 20241016
  Serious: No
  Sender: BLUEPRINT MEDICINES
  Company Number: US-Blueprint Medicines Corporation-4002

PATIENT
  Sex: Male

DRUGS (1)
  1. AYVAKIT [Suspect]
     Active Substance: AVAPRITINIB
     Indication: Systemic mastocytosis
     Route: 065
     Dates: start: 20240119

REACTIONS (5)
  - Limb injury [Unknown]
  - Platelet count decreased [Recovering/Resolving]
  - Skin haemorrhage [Unknown]
  - Skin laceration [Unknown]
  - Skin atrophy [Unknown]
